FAERS Safety Report 9322043 (Version 1)
Quarter: 2013Q2

REPORT INFORMATION
  Report Type: Spontaneous
  Country: FR (occurrence: None)
  Receive Date: 20130529
  Receipt Date: 20130529
  Transmission Date: 20140414
  Serious: Yes (Other)
  Sender: FDA-Public Use
  Company Number: 221724

PATIENT
  Age: 31 Year
  Sex: Female

DRUGS (1)
  1. DAIVOBET [Suspect]
     Indication: PSORIASIS
     Route: 061
     Dates: start: 20130314, end: 20130506

REACTIONS (2)
  - Folliculitis [None]
  - Abasia [None]
